FAERS Safety Report 16364238 (Version 3)
Quarter: 2019Q3

REPORT INFORMATION
  Report Type: Spontaneous
  Country: US (occurrence: US)
  Receive Date: 20190528
  Receipt Date: 20190716
  Transmission Date: 20191004
  Serious: Yes (Hospitalization)
  Sender: FDA-Public Use
  Company Number: US-ACTELION-A-US2018-175746

PATIENT
  Age: 73 Year
  Sex: Male

DRUGS (1)
  1. OPSUMIT [Suspect]
     Active Substance: MACITENTAN
     Indication: PULMONARY HYPERTENSION
     Dosage: 10 MG, UNK
     Route: 048
     Dates: start: 20170706, end: 20190619

REACTIONS (8)
  - Oedema peripheral [Unknown]
  - Angiogram pulmonary [Unknown]
  - Dyspnoea [Unknown]
  - Anaemia [Unknown]
  - Cardiac dysfunction [Unknown]
  - Catheterisation cardiac [Unknown]
  - Fluid retention [Unknown]
  - Spinal compression fracture [Unknown]

NARRATIVE: CASE EVENT DATE: 20190402
